FAERS Safety Report 7720771-6 (Version None)
Quarter: 2011Q3

REPORT INFORMATION
  Report Type: 
  Country: None (occurrence: None)
  Receive Date: 20110831
  Receipt Date: 20110826
  Transmission Date: 20111222
  Serious: Yes (Death, Hospitalization)
  Sender: FDA-Public Use
  Company Number: US-ASTELLAS-2011US000636

PATIENT

DRUGS (1)
  1. PROGRAF [Suspect]
     Indication: RENAL TRANSPLANT
     Dosage: 1.5 MG, BID
     Route: 048
     Dates: start: 20080820, end: 20101006

REACTIONS (16)
  - HICCUPS [None]
  - ABDOMINAL DISTENSION [None]
  - PYREXIA [None]
  - DIABETES MELLITUS [None]
  - ASTHENIA [None]
  - INFLUENZA [None]
  - CONFUSIONAL STATE [None]
  - PULMONARY OEDEMA [None]
  - HEPATIC STEATOSIS [None]
  - SHOCK [None]
  - HERPES ZOSTER [None]
  - RENAL GRAFT LOSS [None]
  - DIZZINESS [None]
  - COMA [None]
  - HAEMORRHAGE [None]
  - COUGH [None]
